FAERS Safety Report 10250790 (Version 5)
Quarter: 2014Q3

REPORT INFORMATION
  Report Type: Spontaneous
  Country: GB (occurrence: GB)
  Receive Date: 20140620
  Receipt Date: 20140807
  Transmission Date: 20150326
  Serious: Yes (Death, Other)
  Sender: FDA-Public Use
  Company Number: GB-PFIZER INC-2014169468

PATIENT
  Age: 77 Year
  Sex: Male

DRUGS (10)
  1. ROTIGOTINE [Suspect]
     Active Substance: ROTIGOTINE
     Dosage: 16 MG, UNK
  2. APOMORPHINE [Concomitant]
     Active Substance: APOMORPHINE
     Dosage: UNK
  3. SINEMET CR [Suspect]
     Active Substance: CARBIDOPA\LEVODOPA
     Dosage: 250 MG, DAILY
  4. MADOPAR [Suspect]
     Active Substance: BENSERAZIDE HYDROCHLORIDE\LEVODOPA
     Dosage: UNK
  5. RASAGILINE [Suspect]
     Active Substance: RASAGILINE
     Dosage: 1 MG, UNK
  6. SINEMET [Suspect]
     Active Substance: CARBIDOPA\LEVODOPA
     Dosage: 375 MG, DAILY
  7. STALEVO [Suspect]
     Active Substance: CARBIDOPA\ENTACAPONE\LEVODOPA
     Dosage: 200 MG, 4X/DAY
  8. WARFARIN [Suspect]
     Active Substance: WARFARIN
     Dosage: UNK
  9. AMLODIPINE [Suspect]
     Active Substance: AMLODIPINE BESYLATE
     Dosage: UNK
  10. ROTIGOTINE [Suspect]
     Active Substance: ROTIGOTINE
     Dosage: 8 MG, UNK
     Route: 062

REACTIONS (2)
  - Myocardial ischaemia [Unknown]
  - Myocardial infarction [Fatal]

NARRATIVE: CASE EVENT DATE: 201404
